FAERS Safety Report 11598828 (Version 2)
Quarter: 2015Q4

REPORT INFORMATION
  Report Type: Spontaneous
  Country: IT (occurrence: IT)
  Receive Date: 20151006
  Receipt Date: 20151023
  Transmission Date: 20160304
  Serious: Yes (Other)
  Sender: FDA-Public Use
  Company Number: IT-SA-2015SA150810

PATIENT
  Sex: Male

DRUGS (10)
  1. TOTALIP [Concomitant]
     Active Substance: ATORVASTATIN
     Dosage: 40 MG
  2. TRIATEC [Suspect]
     Active Substance: RAMIPRIL
     Indication: HYPERTENSION
     Dosage: FORM: DIVISIBLE TABLET DOSE:1 UNIT(S)
     Route: 048
     Dates: start: 20150101, end: 20150711
  3. COUMADIN [Concomitant]
     Active Substance: WARFARIN SODIUM
     Dosage: FORM: DIVISIBLE TABLETS?STRENGTH: 5 MG
  4. KANRENOL [Concomitant]
     Active Substance: CANRENOATE POTASSIUM
     Dosage: 100 MG DOSE:1 UNIT(S)
     Route: 048
  5. LASIX [Suspect]
     Active Substance: FUROSEMIDE
     Route: 048
     Dates: start: 20150101, end: 20150711
  6. LASIX [Suspect]
     Active Substance: FUROSEMIDE
     Route: 048
  7. CARDIOASPIRIN [Concomitant]
     Active Substance: ASPIRIN
     Dosage: 100 MG
  8. LANOXIN [Suspect]
     Active Substance: DIGOXIN
     Indication: HYPERTENSIVE HEART DISEASE
     Dosage: STRENGTH: 0.125 MG DOSE:1 UNIT(S)
     Route: 048
     Dates: start: 20150101, end: 20150711
  9. ALLOPURINOL. [Concomitant]
     Active Substance: ALLOPURINOL
  10. PARIET [Concomitant]
     Active Substance: RABEPRAZOLE SODIUM
     Dosage: 20 MG

REACTIONS (7)
  - Overdose [Unknown]
  - Hyponatraemia [Unknown]
  - Muscle spasms [Unknown]
  - Hyperkalaemia [Unknown]
  - Diarrhoea [Unknown]
  - Abdominal pain [Unknown]
  - Asthenia [Unknown]

NARRATIVE: CASE EVENT DATE: 20150611
